FAERS Safety Report 5103206-1 (Version None)
Quarter: 2006Q3

REPORT INFORMATION
  Report Type: 
  Country: None (occurrence: None)
  Receive Date: 20060912
  Receipt Date: 20060912
  Transmission Date: 20061208
  Serious: Yes (Hospitalization)
  Sender: FDA-Public Use
  Company Number: None

PATIENT
  Sex: Male

DRUGS (6)
  1. DOCETAXEL [Suspect]
     Indication: NON-SMALL CELL LUNG CANCER
     Dosage: 72 MG , DAYS : 1, 8, 15 (IV)
     Route: 042
     Dates: start: 20060814
  2. LOVENOX [Concomitant]
  3. DILTIAZEM HCL [Concomitant]
  4. ZETIA [Concomitant]
  5. VICODEN [Concomitant]
  6. CAPECITABINE [Suspect]
     Indication: NON-SMALL CELL LUNG CANCER
     Dosage: 1250 MG, DAYS 5-14, PO BID (NEVER STARTED)

REACTIONS (1)
  - PNEUMONIA [None]
